FAERS Safety Report 7637144-7 (Version None)
Quarter: 2011Q3

REPORT INFORMATION
  Report Type: 
  Country: None (occurrence: None)
  Receive Date: 20110726
  Receipt Date: 20110715
  Transmission Date: 20111222
  Serious: Yes (Death)
  Sender: FDA-Public Use
  Company Number: US-GENZYME-CLOF-1001715

PATIENT

DRUGS (7)
  1. CLOLAR [Suspect]
     Indication: STEM CELL TRANSPLANT
  2. MELPHALAN HYDROCHLORIDE [Suspect]
     Indication: ACUTE LEUKAEMIA
     Dosage: 70 MG/M2, QD, FOR 2 DAYS
     Route: 065
  3. THIOTEPA [Suspect]
     Indication: STEM CELL TRANSPLANT
  4. TACROLIMUS [Concomitant]
     Indication: PROPHYLAXIS AGAINST GRAFT VERSUS HOST DISEASE
     Dosage: UNK
     Route: 065
  5. MELPHALAN HYDROCHLORIDE [Suspect]
     Indication: STEM CELL TRANSPLANT
  6. CLOLAR [Suspect]
     Indication: ACUTE LEUKAEMIA
     Dosage: UNK, FOR 5 DAYS
     Route: 065
  7. THIOTEPA [Suspect]
     Indication: ACUTE LEUKAEMIA
     Dosage: 10 MG/KG, QD, 1 DAY
     Route: 065

REACTIONS (1)
  - ACUTE LEUKAEMIA [None]
